FAERS Safety Report 7521649-3 (Version None)
Quarter: 2011Q2

REPORT INFORMATION
  Report Type: 
  Country: None (occurrence: None)
  Receive Date: 20110524
  Receipt Date: 20110510
  Transmission Date: 20111010
  Serious: Yes (Other)
  Sender: FDA-Public Use
  Company Number: US-GDP-11410094

PATIENT
  Sex: Male

DRUGS (7)
  1. SOLODYN [Concomitant]
  2. CRESTOR /01588602/ [Concomitant]
  3. EXFORGE [Concomitant]
  4. DIPHENHYDRAMINE HCL [Concomitant]
  5. METROGEL [Suspect]
     Indication: ROSACEA
     Dosage: 1 DF QD TOPICAL (TOPICAL)
     Route: 061
     Dates: start: 20110212, end: 20110217
  6. METROGEL [Suspect]
     Indication: ROSACEA
     Dosage: 1 DF QD TOPICAL (TOPICAL)
     Route: 061
     Dates: start: 20070101
  7. ASPIRIN [Concomitant]

REACTIONS (6)
  - LIP SWELLING [None]
  - VASCULITIS [None]
  - DYSGEUSIA [None]
  - NEUROPATHY PERIPHERAL [None]
  - ANAEMIA OF CHRONIC DISEASE [None]
  - HERPES ZOSTER [None]
